FAERS Safety Report 8776759 (Version 1)
Quarter: 2012Q4

REPORT INFORMATION
  Report Type: 
  Country: BE (occurrence: BE)
  Receive Date: 20120911
  Receipt Date: 20120911
  Transmission Date: 20130627
  Serious: Yes (Other)
  Sender: FDA-Public Use
  Company Number: BE-BAYER-2012-094058

PATIENT
  Age: 46 Year
  Sex: Female

DRUGS (2)
  1. MOXIFLOXACIN [Suspect]
     Dosage: 400 mg, QD
     Route: 048
     Dates: start: 201208, end: 201208
  2. IBUPROFEN [Suspect]
     Dosage: UNK
     Route: 048
     Dates: start: 201208

REACTIONS (2)
  - Anaphylactic shock [Recovered/Resolved]
  - Angioedema [Recovered/Resolved]
